FAERS Safety Report 6954724-2 (Version None)
Quarter: 2010Q3

REPORT INFORMATION
  Report Type: 
  Country: None (occurrence: None)
  Receive Date: 20100829
  Receipt Date: 20091228
  Transmission Date: 20110219
  Serious: No
  Sender: FDA-Public Use
  Company Number: US-ALLERGAN-0917676US

PATIENT
  Sex: Female

DRUGS (1)
  1. FML [Suspect]
     Indication: DERMATITIS ALLERGIC
     Route: 061

REACTIONS (6)
  - DRUG ADMINISTERED AT INAPPROPRIATE SITE [None]
  - EYE PAIN [None]
  - EYELID OEDEMA [None]
  - FLUSHING [None]
  - FOREIGN BODY SENSATION IN EYES [None]
  - LACRIMATION INCREASED [None]
